FAERS Safety Report 26126260 (Version 1)
Quarter: 2025Q4

REPORT INFORMATION
  Report Type: Spontaneous
  Country: US (occurrence: US)
  Receive Date: 20251205
  Receipt Date: 20251205
  Transmission Date: 20260118
  Serious: Yes (Other)
  Sender: RANBAXY
  Company Number: US-SUN PHARMACEUTICAL INDUSTRIES LTD-2025R1-536001

PATIENT
  Sex: Female

DRUGS (1)
  1. ODOMZO [Suspect]
     Active Substance: SONIDEGIB
     Indication: Basal cell carcinoma
     Dosage: 200 MILLIGRAM, DAILY
     Route: 048
     Dates: start: 20250228, end: 20251014

REACTIONS (6)
  - Hip fracture [Unknown]
  - Drug intolerance [Unknown]
  - Therapy cessation [Unknown]
  - Muscle spasms [Unknown]
  - Alopecia [Unknown]
  - Osteoporosis [Unknown]
